FAERS Safety Report 10440794 (Version 1)
Quarter: 2014Q3

REPORT INFORMATION
  Report Type: Spontaneous
  Country: GB (occurrence: GB)
  Receive Date: 20140909
  Receipt Date: 20140909
  Transmission Date: 20150326
  Serious: Yes (Hospitalization)
  Sender: FDA-Public Use
  Company Number: PHHY2014GB110466

PATIENT
  Age: 87 Year
  Sex: Male

DRUGS (8)
  1. OMEPRAZOLE. [Concomitant]
     Active Substance: OMEPRAZOLE
     Dosage: 20 MG, QD
     Route: 048
  2. ENTACAPONE. [Suspect]
     Active Substance: ENTACAPONE
     Dosage: 200 MG, QID
     Route: 048
     Dates: start: 20140722, end: 20140726
  3. SINEMET [Concomitant]
     Active Substance: CARBIDOPA\LEVODOPA
     Dosage: 0.25 DF, QID
     Route: 048
  4. ATENOLOL. [Concomitant]
     Active Substance: ATENOLOL
     Dosage: 50 MG, QD
  5. RAMIPRIL. [Concomitant]
     Active Substance: RAMIPRIL
     Dosage: 5 MG, QD
     Dates: start: 20140801
  6. ASPIRIN. [Concomitant]
     Active Substance: ASPIRIN
     Dosage: 75 MG, QD
     Route: 048
     Dates: start: 20140522
  7. FOLIC ACID. [Concomitant]
     Active Substance: FOLIC ACID
     Dosage: 5 MG, QD
  8. SIMVASTATIN. [Concomitant]
     Active Substance: SIMVASTATIN
     Dosage: 10 MG, QD
     Route: 048

REACTIONS (3)
  - Urinary tract infection [Unknown]
  - Aggression [Unknown]
  - Hallucination [Unknown]
